FAERS Safety Report 4990508-2 (Version None)
Quarter: 2006Q2

REPORT INFORMATION
  Report Type: 
  Country: None (occurrence: None)
  Receive Date: 20060501
  Receipt Date: 20060501
  Transmission Date: 20061013
  Serious: Yes (Other)
  Sender: FDA-Public Use
  Company Number: None

PATIENT
  Sex: Male
  Weight: 65.7716 kg

DRUGS (6)
  1. FENTANYL [Suspect]
     Indication: SPINAL LAMINECTOMY
     Dosage: 75 MCG/HR TRANSDERMAL
     Route: 062
     Dates: start: 20060313
  2. GABAPENTIN [Concomitant]
  3. AMITRIPTYLINE HCL [Concomitant]
  4. ARTHROTEC [Concomitant]
  5. VICODIN [Concomitant]
  6. PREVACID [Concomitant]

REACTIONS (3)
  - DRUG WITHDRAWAL SYNDROME [None]
  - THERAPEUTIC RESPONSE UNEXPECTED WITH DRUG SUBSTITUTION [None]
  - TREMOR [None]
